FAERS Safety Report 13080221 (Version 1)
Quarter: 2017Q1

REPORT INFORMATION
  Report Type: Spontaneous
  Country: US (occurrence: US)
  Receive Date: 20170103
  Receipt Date: 20170103
  Transmission Date: 20170428
  Serious: Yes (Death, Other)
  Sender: FDA-Public Use
  Company Number: US-CLINIGEN GROUP PLC/ CLINIGEN HEALTHCARE LTD-E2B_00005601

PATIENT
  Age: 6 Year
  Sex: Female

DRUGS (9)
  1. CIDOFOVIR - CONCENTRATE FOR SOLUTION FOR INFUSION [Concomitant]
  2. FOSCARNET?SODIUM [Suspect]
     Active Substance: FOSCARNET SODIUM
     Indication: CYTOMEGALOVIRUS VIRAEMIA
  3. FOSCARNET?SODIUM [Suspect]
     Active Substance: FOSCARNET SODIUM
  4. GANCICLOVIR - INTRAVENOUS INFUSION [Concomitant]
     Indication: CYTOMEGALOVIRUS VIRAEMIA
     Route: 042
  5. CIDOFOVIR - CONCENTRATE FOR SOLUTION FOR INFUSION [Concomitant]
     Indication: CYTOMEGALOVIRUS VIRAEMIA
  6. PROBENECID - TABLET [Concomitant]
     Route: 048
  7. GANCICLOVIR - INTRAVENOUS INFUSION [Concomitant]
     Indication: ENCEPHALITIS CYTOMEGALOVIRUS
     Route: 042
  8. GAMMA GLOBULINE [Concomitant]
     Indication: CYTOMEGALOVIRUS VIRAEMIA
  9. HUMAN CYTOMEGALOVIRUS IMMUNOGLOBULINS - SOLUTION FOR INFUSION [Concomitant]
     Indication: CYTOMEGALOVIRUS VIRAEMIA

REACTIONS (16)
  - Headache [Recovered/Resolved]
  - White blood cell count decreased [Unknown]
  - Abdominal distension [Unknown]
  - Creatinine renal clearance decreased [Unknown]
  - Pancytopenia [Unknown]
  - Renal abscess [Unknown]
  - Pneumonia [Unknown]
  - Acute sinusitis [Unknown]
  - Hypertension [Unknown]
  - Circulatory collapse [Fatal]
  - Immunosuppression [Unknown]
  - Hydrocephalus [Unknown]
  - Gastrointestinal haemorrhage [Unknown]
  - Generalised tonic-clonic seizure [Unknown]
  - Multiple organ dysfunction syndrome [Fatal]
  - Pyrexia [Unknown]
